FAERS Safety Report 13301727 (Version 1)
Quarter: 2017Q1

REPORT INFORMATION
  Report Type: Spontaneous
  Country: US (occurrence: US)
  Receive Date: 20170307
  Receipt Date: 20170307
  Transmission Date: 20170428
  Serious: Yes (Death, Hospitalization, Other)
  Sender: FDA-Public Use
  Company Number: US-IGSA-GBI005174

PATIENT
  Sex: Male
  Weight: 67 kg

DRUGS (3)
  1. PROFILNINE SD [Suspect]
     Active Substance: FACTOR IX COMPLEX
     Indication: PROCOAGULANT THERAPY
     Route: 042
     Dates: start: 20140613, end: 20140613
  2. NOVOSEVEN RT [Suspect]
     Active Substance: COAGULATION FACTOR VIIA RECOMBINANT HUMAN
     Indication: PROCOAGULANT THERAPY
     Route: 042
     Dates: start: 20140613, end: 20140613
  3. WARFARIN [Concomitant]
     Active Substance: WARFARIN

REACTIONS (2)
  - Thrombosis [Fatal]
  - Off label use [Fatal]

NARRATIVE: CASE EVENT DATE: 20140613
